FAERS Safety Report 16255024 (Version 1)
Quarter: 2019Q2

REPORT INFORMATION
  Report Type: Spontaneous
  Country: IN (occurrence: IN)
  Receive Date: 20190430
  Receipt Date: 20190430
  Transmission Date: 20190711
  Serious: Yes (Death, Life-Threatening, Hospitalization, Other)
  Sender: FDA-Public Use
  Company Number: IN-STRIDES ARCOLAB LIMITED-2019SP003566

PATIENT
  Age: 28 Year
  Sex: Male

DRUGS (6)
  1. METHYLPREDNISOLONE. [Suspect]
     Active Substance: METHYLPREDNISOLONE
     Indication: RENAL TRANSPLANT
     Dosage: UNK, THREE DOSES
     Route: 065
  2. PREDNISOLONE. [Suspect]
     Active Substance: PREDNISOLONE
     Indication: RENAL TRANSPLANT
     Dosage: UNK
     Route: 065
  3. METHYLPREDNISOLONE. [Suspect]
     Active Substance: METHYLPREDNISOLONE
     Dosage: UNK, THREE DOSES
     Route: 065
  4. BASILIXIMAB [Concomitant]
     Active Substance: BASILIXIMAB
     Indication: RENAL TRANSPLANT
     Dosage: 20 MG ON DAY 0 AND DAY 4
     Route: 065
  5. MYCOPHENOLATE MOFETIL. [Suspect]
     Active Substance: MYCOPHENOLATE MOFETIL
     Indication: RENAL TRANSPLANT
     Dosage: UNK
     Route: 065
  6. TACROLIMUS. [Suspect]
     Active Substance: TACROLIMUS
     Indication: RENAL TRANSPLANT
     Dosage: UNK
     Route: 065

REACTIONS (17)
  - Neutropenic sepsis [Fatal]
  - Mucormycosis [Fatal]
  - Renal failure [Unknown]
  - Pseudomonas infection [Unknown]
  - Cytomegalovirus infection [Unknown]
  - Shock [Fatal]
  - Transplant rejection [Fatal]
  - Acinetobacter infection [Fatal]
  - Pulmonary congestion [Unknown]
  - Tachypnoea [Unknown]
  - Hypotension [Unknown]
  - Renal tubular necrosis [Fatal]
  - Abnormal behaviour [Unknown]
  - Urinary tract infection [Fatal]
  - Pyrexia [Unknown]
  - Sepsis [Fatal]
  - Dyspnoea [Unknown]
